FAERS Safety Report 14281152 (Version 6)
Quarter: 2018Q1

REPORT INFORMATION
  Report Type: Spontaneous
  Country: IT (occurrence: IT)
  Receive Date: 20171213
  Receipt Date: 20180207
  Transmission Date: 20180508
  Serious: Yes (Other)
  Sender: FDA-Public Use
  Company Number: IT-TEVA-809876ACC

PATIENT
  Age: 16 Year
  Sex: Female

DRUGS (10)
  1. LORAZEPAM. [Suspect]
     Active Substance: LORAZEPAM
     Indication: INTENTIONAL SELF-INJURY
     Route: 048
     Dates: start: 20170905, end: 20170905
  2. ALCOHOL. [Suspect]
     Active Substance: ALCOHOL
     Indication: PRODUCT USED FOR UNKNOWN INDICATION
     Route: 048
     Dates: start: 20170905, end: 20170905
  3. VENLAFAXINE [Suspect]
     Active Substance: VENLAFAXINE HYDROCHLORIDE
     Indication: INTENTIONAL SELF-INJURY
     Dosage: 150 MG TOTAL
     Route: 048
     Dates: start: 20170905, end: 20170905
  4. DEPAKIN - 200 MG/ML SOLUZIONE ORALE [Concomitant]
     Indication: ATTENTION DEFICIT/HYPERACTIVITY DISORDER
  5. TRIAZOLAM. [Interacting]
     Active Substance: TRIAZOLAM
     Indication: INTENTIONAL SELF-INJURY
     Route: 048
     Dates: start: 20170905, end: 20170905
  6. DEPAKIN - 200 MG/ML SOLUZIONE ORALE [Concomitant]
     Indication: INTELLECTUAL DISABILITY
     Route: 048
  7. LORMETAZEPAM [Suspect]
     Active Substance: LORMETAZEPAM
     Indication: INTENTIONAL SELF-INJURY
     Route: 048
     Dates: start: 20170905, end: 20170905
  8. RISPERDAL [Suspect]
     Active Substance: RISPERIDONE
     Indication: INTELLECTUAL DISABILITY
  9. RISPERDAL [Suspect]
     Active Substance: RISPERIDONE
     Indication: INTENTIONAL SELF-INJURY
     Route: 048
     Dates: start: 20170905, end: 20170905
  10. RISPERDAL [Suspect]
     Active Substance: RISPERIDONE
     Indication: ATTENTION DEFICIT/HYPERACTIVITY DISORDER

REACTIONS (11)
  - Intentional product misuse [Recovered/Resolved]
  - Alcohol interaction [Unknown]
  - Overdose [Recovered/Resolved]
  - Attention deficit/hyperactivity disorder [Unknown]
  - Loss of consciousness [Unknown]
  - Intellectual disability [Unknown]
  - Contraindicated product administered [Recovered/Resolved]
  - Sopor [Unknown]
  - Drug abuse [Unknown]
  - Intentional self-injury [Unknown]
  - Aphasia [Unknown]

NARRATIVE: CASE EVENT DATE: 20170905
